FAERS Safety Report 9537703 (Version 1)
Quarter: 2013Q3

REPORT INFORMATION
  Report Type: Spontaneous
  Country: US (occurrence: US)
  Receive Date: 20130919
  Receipt Date: 20130919
  Transmission Date: 20140515
  Serious: Yes (Hospitalization, Other)
  Sender: FDA-Public Use
  Company Number: US-B.I. PHARMACEUTICALS,INC./RIDGEFIELD-2013-BI-29006BP

PATIENT
  Age: 68 Year
  Sex: Female
  Weight: 82 kg

DRUGS (4)
  1. SPIRIVA [Suspect]
     Indication: EMPHYSEMA
     Dosage: 18 MCG
     Route: 055
     Dates: start: 2004
  2. ADVAIR [Concomitant]
     Indication: EMPHYSEMA
     Dosage: STRENGTH: (INHALATION SOLUTION) STRENGTH: 250MCG/50MCG; DAILY DOSE: 500MCG/100MCG
     Route: 055
  3. ALBUTEROL [Concomitant]
     Indication: DYSPNOEA
     Route: 055
  4. PREDNISONE [Concomitant]
     Indication: EMPHYSEMA
     Dosage: 10 MG
     Route: 048

REACTIONS (2)
  - Lung neoplasm malignant [Not Recovered/Not Resolved]
  - Pneumothorax [Recovered/Resolved]
